FAERS Safety Report 6163602-0 (Version None)
Quarter: 2009Q2

REPORT INFORMATION
  Report Type: 
  Country: None (occurrence: None)
  Receive Date: 20090420
  Receipt Date: 20081210
  Transmission Date: 20091009
  Serious: Yes (Hospitalization)
  Sender: FDA-Public Use
  Company Number: 8044755

PATIENT
  Age: 84 Year
  Sex: Female

DRUGS (22)
  1. CETIRIZINE [Suspect]
     Indication: PRURITUS
     Dosage: 10 MG 1/D PO
     Route: 048
     Dates: start: 20051010, end: 20051010
  2. PREDNISOLONE [Suspect]
     Indication: RASH
     Dosage: TOP
     Route: 061
     Dates: start: 20051008, end: 20051012
  3. METFORMIN HYDROCHLORIDE [Suspect]
     Indication: DIABETES MELLITUS
     Dosage: PO
     Route: 048
     Dates: start: 20050525, end: 20051016
  4. PLANUM /00393701/ [Suspect]
     Indication: SLEEP DISORDER
     Dosage: PO
     Route: 048
     Dates: start: 20050928
  5. PHENHYDAN /00017401/ [Suspect]
     Indication: CONVULSION PROPHYLAXIS
     Dosage: PO
     Route: 048
     Dates: start: 20050918
  6. COTRIM [Suspect]
     Dosage: PO
     Route: 048
     Dates: start: 20051016, end: 20051019
  7. BIFTTERAL [Suspect]
     Indication: CONSTIPATION
     Dosage: 10 ML 1/D PO
     Route: 048
     Dates: start: 20050918, end: 20051006
  8. FOSAMAX [Suspect]
     Indication: OSTEOPOROSIS
     Dosage: PO
     Route: 048
     Dates: start: 20050826, end: 20051005
  9. ASPIRIN [Suspect]
     Dosage: 100 MG 1/D PO
     Route: 048
     Dates: start: 20050918, end: 20051018
  10. CARMEN [Suspect]
     Indication: HYPERTENSION
     Dosage: 10 MG 2/D PO
     Route: 048
     Dates: start: 20050525
  11. PANTOZOL /01263202/ [Suspect]
     Dosage: 40 MG 1/D PO
     Route: 048
     Dates: start: 20050918, end: 20050927
  12. PANTOZOL /01263202/ [Suspect]
     Indication: GASTRITIS PROPHYLAXIS
     Dosage: 20 MG /D PO
     Route: 048
     Dates: start: 20051006, end: 20051010
  13. IDEOS /00944201/ [Suspect]
     Indication: OSTEOPOROSIS
     Dosage: PO
     Route: 048
     Dates: start: 20050826
  14. MONO-EMBOLEX /00889602/ [Suspect]
     Indication: THROMBOSIS PROPHYLAXIS
     Dosage: 0.5 MG 1/D SC
     Route: 058
     Dates: start: 20050918, end: 20051010
  15. RIVOTRIL [Suspect]
     Indication: RESTLESSNESS
     Dosage: 0.5 MG 1/D PO
     Route: 048
     Dates: start: 20051004, end: 20051007
  16. HALDOL [Suspect]
     Indication: RESTLESSNESS
     Dosage: PO
     Route: 048
     Dates: start: 20051006, end: 20051007
  17. MOVICOL /01053601/ [Suspect]
     Indication: CONSTIPATION
     Dosage: PO
     Route: 048
     Dates: start: 20051006, end: 20051022
  18. PASPERTIN /00041902/ [Suspect]
     Indication: NAUSEA
     Dosage: PO
     Route: 048
     Dates: start: 20051014
  19. NEXIUM [Suspect]
     Dosage: 40 MG 1/D PO
     Route: 048
     Dates: start: 20051018, end: 20051020
  20. NOVALGIN [Concomitant]
  21. VOLTAREN [Concomitant]
  22. DELIX PLUS [Concomitant]

REACTIONS (7)
  - CONSTIPATION [None]
  - DRY SKIN [None]
  - NAUSEA [None]
  - PRURITUS [None]
  - RESTLESSNESS [None]
  - SLEEP DISORDER [None]
  - STEVENS-JOHNSON SYNDROME [None]
